FAERS Safety Report 5807798-6 (Version None)
Quarter: 2008Q3

REPORT INFORMATION
  Report Type: 
  Country: None (occurrence: None)
  Receive Date: 20080711
  Receipt Date: 20080710
  Transmission Date: 20090109
  Serious: Yes (Hospitalization)
  Sender: FDA-Public Use
  Company Number: US-BOEHRINGER INGELHEIM GMBH, GERMANY-2008-BP-05852BP

PATIENT
  Age: 79 Year
  Sex: Male

DRUGS (19)
  1. SPIRIVA [Suspect]
     Indication: CHRONIC OBSTRUCTIVE PULMONARY DISEASE
     Route: 055
  2. NEB [Concomitant]
  3. WELLBUTRIN [Concomitant]
     Indication: DEPRESSION
  4. PREDNISONE TAB [Concomitant]
     Indication: CHRONIC OBSTRUCTIVE PULMONARY DISEASE
  5. LASIX [Concomitant]
     Indication: CARDIAC FAILURE CONGESTIVE
  6. AVODART [Concomitant]
     Indication: BENIGN PROSTATIC HYPERPLASIA
  7. DILTIAZEM HCL [Concomitant]
     Indication: CARDIAC DISORDER
  8. DIOVAN [Concomitant]
     Indication: CARDIAC DISORDER
  9. SINGULAIR [Concomitant]
     Indication: CHRONIC OBSTRUCTIVE PULMONARY DISEASE
  10. ATIVAN [Concomitant]
     Indication: ANXIETY
  11. CLARITIN [Concomitant]
  12. OXYGEN [Concomitant]
  13. ADVAIR DISKUS 100/50 [Concomitant]
  14. GUAFICIN [Concomitant]
  15. PLAVIX [Concomitant]
  16. NORVASC [Concomitant]
  17. ZOCOR [Concomitant]
  18. COUMADIN [Concomitant]
  19. FINASTERIDE [Concomitant]

REACTIONS (5)
  - CARDIAC FAILURE CONGESTIVE [None]
  - NERVOUSNESS [None]
  - PNEUMONIA [None]
  - VISION BLURRED [None]
  - VISUAL ACUITY REDUCED [None]
